FAERS Safety Report 25613684 (Version 1)
Quarter: 2025Q3

REPORT INFORMATION
  Report Type: Report from Study
  Country: IN (occurrence: IN)
  Receive Date: 20250728
  Receipt Date: 20250728
  Transmission Date: 20251020
  Serious: Yes (Hospitalization)
  Sender: TAKEDA
  Company Number: IN-JNJFOC-20250724924

PATIENT
  Sex: Male
  Weight: 61 kg

DRUGS (4)
  1. BORTEZOMIB [Suspect]
     Active Substance: BORTEZOMIB
     Indication: Plasma cell myeloma
     Dosage: 2 MILLIGRAM, 1/WEEK
  2. DEXAMETHASONE [Suspect]
     Active Substance: DEXAMETHASONE
     Indication: Plasma cell myeloma
  3. LENALIDOMIDE [Suspect]
     Active Substance: LENALIDOMIDE
     Indication: Plasma cell myeloma
     Dosage: 20 MILLIGRAM, QD
     Dates: start: 20250703
  4. ASPIRIN [Concomitant]
     Active Substance: ASPIRIN
     Indication: Product used for unknown indication
     Dosage: 75 MILLIGRAM, QD

REACTIONS (4)
  - Pyrexia [Unknown]
  - Laboratory test abnormal [Unknown]
  - Intentional product use issue [Unknown]
  - Malaise [Unknown]
